FAERS Safety Report 19614276 (Version 1)
Quarter: 2021Q3

REPORT INFORMATION
  Report Type: Spontaneous
  Country: US (occurrence: US)
  Receive Date: 20210727
  Receipt Date: 20210727
  Transmission Date: 20211014
  Serious: No
  Sender: FDA-Public Use
  Company Number: US-OSMOTICA_PHARMACEUTICAL_US_LLC-POI0573202000422

PATIENT
  Age: 48 Year
  Sex: Female

DRUGS (2)
  1. DIVIGEL [Suspect]
     Active Substance: ESTRADIOL
     Indication: HOT FLUSH
     Dosage: ONE HALF OF 1 MG PACKET
     Route: 062
     Dates: start: 2019
  2. DIVIGEL [Suspect]
     Active Substance: ESTRADIOL
     Indication: OSTEOPOROSIS

REACTIONS (2)
  - Off label use [Not Recovered/Not Resolved]
  - Drug ineffective [Recovered/Resolved]

NARRATIVE: CASE EVENT DATE: 2019
